FAERS Safety Report 6515143-6 (Version None)
Quarter: 2009Q4

REPORT INFORMATION
  Report Type: 
  Country: None (occurrence: None)
  Receive Date: 20091223
  Receipt Date: 20091216
  Transmission Date: 20100525
  Serious: Yes (Congenital Anomaly)
  Sender: FDA-Public Use
  Company Number: IT-BAYER-200943399GPV

PATIENT
  Age: 0 Hour
  Sex: Male
  Weight: 2.91 kg

DRUGS (4)
  1. CIPROXIN [Suspect]
     Indication: DRUG USE FOR UNKNOWN INDICATION
     Dosage: TAKEN BETWEEN THE 3RD AND THE 4TH WEEK OF MOTHER'S PREGNANCY
     Route: 064
     Dates: start: 20080101, end: 20080101
  2. AUGMENTIN [Suspect]
     Indication: DRUG USE FOR UNKNOWN INDICATION
     Dosage: TAKEN AT 6TH MONTH OF MOTHER'S PREGNANCY
     Route: 064
  3. VITAMINS [Concomitant]
     Indication: DRUG USE FOR UNKNOWN INDICATION
     Route: 064
  4. FOLIC ACID [Concomitant]
     Indication: DRUG USE FOR UNKNOWN INDICATION
     Dosage: TAKEN BY THE MOTHER FROM THE 5TH WEEK OF PREGNANCY ON
     Route: 064

REACTIONS (1)
  - URETERIC DILATATION [None]
